FAERS Safety Report 9276327 (Version 2)
Quarter: 2013Q2

REPORT INFORMATION
  Report Type: Spontaneous
  Country: US (occurrence: US)
  Receive Date: 20130507
  Receipt Date: 20130523
  Transmission Date: 20140414
  Serious: No
  Sender: FDA-Public Use
  Company Number: US-PFIZER INC-2013136784

PATIENT
  Age: 68 Year
  Sex: Male
  Weight: 64 kg

DRUGS (6)
  1. XALATAN [Suspect]
     Indication: GLAUCOMA
     Dosage: 1 GTT EACH EYE, 1X/DAY
     Route: 047
     Dates: start: 2006
  2. COSOPT [Suspect]
     Indication: GLAUCOMA
     Dosage: 1 GTT EACH EYE, 2X/DAY
     Route: 047
     Dates: start: 2006
  3. ADVANCED DRY EYE RELIEF [Interacting]
     Indication: DRY EYE
     Dosage: 1 GTT EACH EYE, AS NEEDED
     Dates: start: 2006
  4. ADVANCED DRY EYE RELIEF [Interacting]
     Indication: VISUAL IMPAIRMENT
  5. VITAMIN E [Concomitant]
     Dosage: UNK, 1X/DAY
  6. ASPIRIN [Concomitant]
     Indication: CARDIAC DISORDER
     Dosage: 325 MG, 1X/DAY

REACTIONS (2)
  - Drug interaction [Unknown]
  - Intraocular pressure increased [Unknown]
